FAERS Safety Report 19243224 (Version 1)
Quarter: 2021Q2

REPORT INFORMATION
  Report Type: Report from Study
  Country: CA (occurrence: CA)
  Receive Date: 20210511
  Receipt Date: 20210511
  Transmission Date: 20210717
  Serious: Yes (Other)
  Sender: FDA-Public Use
  Company Number: CA-JNJFOC-20200408461

PATIENT
  Age: 64 Year
  Sex: Female
  Weight: 82 kg

DRUGS (1)
  1. REMICADE [Suspect]
     Active Substance: INFLIXIMAB
     Indication: RHEUMATOID ARTHRITIS
     Dosage: LAST INFUSION GIVEN : 18?MAR?2020, FOR BATCH KAM30012 EXPIRY 31?DEC?2022?THE LAST INFUSION WAS GIVEN
     Route: 042

REACTIONS (9)
  - Arthralgia [Unknown]
  - Lung disorder [Unknown]
  - SARS-CoV-2 test positive [Recovered/Resolved]
  - Back pain [Unknown]
  - Flank pain [Unknown]
  - Headache [Unknown]
  - Rheumatoid arthritis [Recovering/Resolving]
  - Nausea [Unknown]
  - Vomiting [Unknown]

NARRATIVE: CASE EVENT DATE: 20200329
